FAERS Safety Report 9290097 (Version 3)
Quarter: 2013Q3

REPORT INFORMATION
  Report Type: Spontaneous
  Country: GB (occurrence: GB)
  Receive Date: 20130515
  Receipt Date: 20130711
  Transmission Date: 20140515
  Serious: Yes (Death, Other)
  Sender: FDA-Public Use
  Company Number: PHFR2013GB002812

PATIENT
  Age: 46 Year
  Sex: Male
  Weight: 52.1 kg

DRUGS (5)
  1. CLOZARIL [Suspect]
     Indication: SCHIZOPHRENIA
     Dosage: UNK UKN, UNK
     Route: 048
     Dates: start: 20120207
  2. HYOSCINE HYDROBROMIDE [Concomitant]
     Indication: SALIVARY HYPERSECRETION
     Dosage: 300 MG, UNK
     Route: 048
  3. LAMOTRIGINE [Concomitant]
     Dosage: 125 MG, UNK
     Route: 048
     Dates: start: 20130204
  4. PROPRANOLOL [Concomitant]
     Indication: ANXIETY
     Dosage: 80 MG, UNK
     Route: 048
  5. LACTULOSE [Concomitant]
     Dosage: UNK UKN, UNK

REACTIONS (8)
  - Circulatory collapse [Fatal]
  - Emphysema [Fatal]
  - Lung disorder [Fatal]
  - Aspergilloma [Unknown]
  - General physical health deterioration [Unknown]
  - White blood cell count increased [Unknown]
  - Neutrophil count increased [Unknown]
  - Differential white blood cell count abnormal [Unknown]
